FAERS Safety Report 23455874 (Version 1)
Quarter: 2024Q1

REPORT INFORMATION
  Report Type: Spontaneous
  Country: CA (occurrence: CA)
  Receive Date: 20240130
  Receipt Date: 20240130
  Transmission Date: 20240410
  Serious: Yes (Other)
  Sender: FDA-Public Use
  Company Number: CA-CELLTRION INC.-2024CA002143

PATIENT

DRUGS (8)
  1. INFLECTRA [Suspect]
     Active Substance: INFLIXIMAB-DYYB
     Indication: Psoriatic arthropathy
     Dosage: 300 MG,Q 0, 2 AND 6 THEN EVERY 8 WEEKS.
     Route: 042
     Dates: start: 20230823
  2. INFLECTRA [Suspect]
     Active Substance: INFLIXIMAB-DYYB
     Dosage: 300 MG,Q 0, 2 AND 6 THEN EVERY 8 WEEKS.
     Route: 042
     Dates: start: 20231127
  3. INFLECTRA [Suspect]
     Active Substance: INFLIXIMAB-DYYB
     Dosage: 300 MG,Q 0, 2 AND 6 THEN EVERY 8 WEEKS.
     Route: 042
     Dates: start: 20240122
  4. METHOTREXATE [Concomitant]
     Active Substance: METHOTREXATE
     Dosage: UNK
  5. PLAQUENIL [Concomitant]
     Active Substance: HYDROXYCHLOROQUINE SULFATE
     Dosage: UNK
  6. PREGABALIN [Concomitant]
     Active Substance: PREGABALIN
     Dosage: UNK
  7. MORPHINE [Concomitant]
     Active Substance: MORPHINE
     Dosage: UNK
  8. SULFADIAZINE\TRIMETHOPRIM [Concomitant]
     Active Substance: SULFADIAZINE\TRIMETHOPRIM
     Dosage: UNK

REACTIONS (2)
  - Sarcoidosis [Recovering/Resolving]
  - Condition aggravated [Recovering/Resolving]

NARRATIVE: CASE EVENT DATE: 20231201
